FAERS Safety Report 5146852-1 (Version None)
Quarter: 2006Q4

REPORT INFORMATION
  Report Type: 
  Country: None (occurrence: None)
  Receive Date: 20061109
  Receipt Date: 20061025
  Transmission Date: 20070319
  Serious: Yes (Hospitalization)
  Sender: FDA-Public Use
  Company Number: US-GLAXOSMITHKLINE-A0624918A

PATIENT
  Age: 51 Year
  Sex: Male
  Weight: 83.8 kg

DRUGS (14)
  1. COMBIVIR [Suspect]
     Indication: HIV INFECTION
     Dosage: 1TAB TWICE PER DAY
     Route: 048
     Dates: start: 19970101, end: 20061001
  2. SUSTIVA [Concomitant]
     Dosage: 600MG PER DAY
     Route: 048
  3. LIPITOR [Concomitant]
     Indication: LIPIDS INCREASED
     Dosage: 10MG PER DAY
     Route: 048
  4. TRICOR [Concomitant]
     Dosage: 160MG PER DAY
     Route: 048
  5. LOMOTIL [Concomitant]
     Dosage: 2TAB AS REQUIRED
     Route: 048
  6. NPH INSULIN [Concomitant]
     Indication: DIABETES MELLITUS
     Route: 058
  7. BENICAR [Concomitant]
     Dosage: 20MG PER DAY
     Route: 048
  8. KLONOPIN [Concomitant]
     Indication: ANXIETY
     Dosage: .5MG TWICE PER DAY
     Route: 048
  9. VALTREX [Concomitant]
     Dosage: 1G PER DAY
     Route: 048
  10. RITALIN [Concomitant]
     Dosage: 10MG TWICE PER DAY
     Route: 048
  11. RESTORIL [Concomitant]
  12. NEXIUM [Concomitant]
     Dosage: 40MG PER DAY
  13. FLONASE [Concomitant]
  14. ALLEGRA [Concomitant]

REACTIONS (8)
  - ANAEMIA [None]
  - BACK PAIN [None]
  - DIZZINESS [None]
  - ERYTHROPOIESIS ABNORMAL [None]
  - HYPOTENSION [None]
  - INTERVERTEBRAL DISC PROTRUSION [None]
  - RENAL FAILURE [None]
  - SERUM FERRITIN INCREASED [None]
